FAERS Safety Report 23250521 (Version 1)
Quarter: 2023Q4

REPORT INFORMATION
  Report Type: Spontaneous
  Country: NZ (occurrence: NZ)
  Receive Date: 20231201
  Receipt Date: 20231201
  Transmission Date: 20240110
  Serious: Yes (Other)
  Sender: FDA-Public Use
  Company Number: NZ-BAYER-2023A167185

PATIENT
  Age: 30 Year
  Sex: Female

DRUGS (1)
  1. MIRENA [Suspect]
     Active Substance: LEVONORGESTREL
     Dosage: 20?G/DAY
     Route: 015

REACTIONS (10)
  - Polycystic ovaries [None]
  - Embedded device [None]
  - Pelvic pain [None]
  - Menstruation irregular [None]
  - Pyrexia [None]
  - Dysmenorrhoea [None]
  - Vaginal haemorrhage [None]
  - Chills [None]
  - Vaginal discharge [None]
  - Heavy menstrual bleeding [None]
